FAERS Safety Report 14712200 (Version 1)
Quarter: 2018Q2

REPORT INFORMATION
  Report Type: Report from Study
  Country: None (occurrence: US)
  Receive Date: 20180404
  Receipt Date: 20180404
  Transmission Date: 20180711
  Serious: Yes (Hospitalization, Other)
  Sender: FDA-Public Use
  Company Number: US-ABBVIE-18K-163-2303887-00

PATIENT
  Sex: Male
  Weight: 74.91 kg

DRUGS (3)
  1. HUMIRA [Suspect]
     Active Substance: ADALIMUMAB
     Indication: CROHN^S DISEASE
     Route: 058
     Dates: start: 2016
  2. RITALIN [Concomitant]
     Active Substance: METHYLPHENIDATE HYDROCHLORIDE
     Indication: DISTURBANCE IN ATTENTION
  3. RITALIN [Concomitant]
     Active Substance: METHYLPHENIDATE HYDROCHLORIDE
     Indication: ASTHENIA

REACTIONS (8)
  - Carpal tunnel syndrome [Recovered/Resolved]
  - Nerve root compression [Recovered/Resolved]
  - Myalgia [Unknown]
  - Muscle tightness [Unknown]
  - Muscle spasms [Unknown]
  - Pain [Recovered/Resolved]
  - Intervertebral disc degeneration [Recovered/Resolved]
  - Spondylitis [Unknown]

NARRATIVE: CASE EVENT DATE: 2017
